FAERS Safety Report 8203982-5 (Version None)
Quarter: 2012Q1

REPORT INFORMATION
  Report Type: 
  Country: None (occurrence: None)
  Receive Date: 20120309
  Receipt Date: 20120228
  Transmission Date: 20120608
  Serious: Yes (Disabling)
  Sender: FDA-Public Use
  Company Number: AXC-2011-000526

PATIENT
  Age: 64 Year
  Sex: Female
  Weight: 56.7 kg

DRUGS (5)
  1. PROGRAF [Suspect]
     Indication: TRANSPLANT
     Dosage: 1 MG, QD, ORAL
     Route: 048
     Dates: start: 20070101
  2. CELLCEPT [Suspect]
     Indication: TRANSPLANT
     Dosage: 500 MG, TID, ORAL
     Route: 048
     Dates: start: 20070101
  3. PREDNISONE [Suspect]
     Indication: TRANSPLANT
     Dosage: 5 MG, QD, ORAL
     Route: 048
     Dates: start: 20070101
  4. AMLODIPINE [Concomitant]
  5. URSODIOL [Suspect]
     Indication: BILIARY CIRRHOSIS PRIMARY
     Dosage: 500 MG, BID,ORAL
     Route: 048
     Dates: start: 20070101

REACTIONS (3)
  - DYSGRAPHIA [None]
  - IMPAIRED DRIVING ABILITY [None]
  - TREMOR [None]
